FAERS Safety Report 7131380-4 (Version None)
Quarter: 2010Q4

REPORT INFORMATION
  Report Type: 
  Country: None (occurrence: None)
  Receive Date: 20101124
  Receipt Date: 20101124
  Transmission Date: 20110411
  Serious: No
  Sender: FDA-Public Use
  Company Number: None

PATIENT
  Age: 44 Year
  Sex: Male
  Weight: 61.5 kg

DRUGS (1)
  1. HEPARIN [Suspect]
     Indication: INDWELLING CATHETER MANAGEMENT
     Dosage: 3000 UNITS ONCE IV BOLUS
     Route: 040
     Dates: start: 20101122, end: 20101122

REACTIONS (2)
  - ABDOMINAL PAIN [None]
  - NAUSEA [None]
